FAERS Safety Report 4948086-X (Version None)
Quarter: 2006Q1

REPORT INFORMATION
  Report Type: 
  Country: None (occurrence: None)
  Receive Date: 20060320
  Receipt Date: 20060308
  Transmission Date: 20060701
  Serious: Yes (Death)
  Sender: FDA-Public Use
  Company Number: NO-MERCK-0603NOR00012

PATIENT
  Age: 48 Year
  Sex: Female

DRUGS (6)
  1. VIOXX [Suspect]
     Indication: HIP DYSPLASIA
     Route: 048
     Dates: start: 20011204, end: 20031101
  2. VIOXX [Suspect]
     Indication: OSTEOARTHRITIS
     Route: 048
     Dates: start: 20011204, end: 20031101
  3. PARALGIN FORTE [Concomitant]
     Route: 065
  4. TELFAST [Concomitant]
     Route: 048
  5. SELEXID (AMDINOCILLIN PIVOXIL HYDROCHLORIDE) [Concomitant]
     Route: 048
  6. FAMOTIDINE [Concomitant]
     Route: 065

REACTIONS (2)
  - CARDIAC FAILURE [None]
  - PULMONARY OEDEMA [None]
